FAERS Safety Report 20245071 (Version 1)
Quarter: 2021Q4

REPORT INFORMATION
  Report Type: Other
  Country: None (occurrence: US)
  Receive Date: 20211229
  Receipt Date: 20211229
  Transmission Date: 20220303
  Serious: Yes (Death, Hospitalization)
  Sender: FDA-Public Use
  Company Number: US-BIOLOGICAL E. LTD-2123448

PATIENT
  Age: 47 Year
  Sex: Male

DRUGS (2)
  1. HEPARIN [Suspect]
     Active Substance: HEPARIN SODIUM
     Indication: Anticoagulant therapy
     Route: 042
  2. ALTEPLASE [Suspect]
     Active Substance: ALTEPLASE
     Route: 042

REACTIONS (1)
  - Drug ineffective [Fatal]
